FAERS Safety Report 24817916 (Version 1)
Quarter: 2025Q1

REPORT INFORMATION
  Report Type: Other
  Country: FR (occurrence: FR)
  Receive Date: 20250108
  Receipt Date: 20250108
  Transmission Date: 20250409
  Serious: Yes (Life-Threatening)
  Sender: STRIDES
  Company Number: FR-STRIDES ARCOLAB LIMITED-2025SP000030

PATIENT
  Age: 65 Year
  Sex: Female
  Weight: 67 kg

DRUGS (3)
  1. IBUPROFEN [Suspect]
     Active Substance: IBUPROFEN
     Indication: Abscess neck
     Route: 048
     Dates: start: 20241119, end: 20241122
  2. Clamoxyl [Concomitant]
     Indication: Abscess neck
     Route: 048
     Dates: start: 20241119, end: 20241122
  3. CEFEPIME [Concomitant]
     Active Substance: CEFEPIME HYDROCHLORIDE
     Indication: Product used for unknown indication
     Route: 065

REACTIONS (1)
  - Cellulitis [Recovering/Resolving]

NARRATIVE: CASE EVENT DATE: 20241122
